FAERS Safety Report 25051047 (Version 1)
Quarter: 2025Q1

REPORT INFORMATION
  Report Type: Spontaneous
  Country: FR (occurrence: FR)
  Receive Date: 20250307
  Receipt Date: 20250307
  Transmission Date: 20250408
  Serious: Yes (Other)
  Sender: MYLAN
  Company Number: None

PATIENT
  Age: 44 Year
  Sex: Male

DRUGS (16)
  1. LYRICA [Suspect]
     Active Substance: PREGABALIN
     Indication: Product used for unknown indication
  2. LYRICA [Suspect]
     Active Substance: PREGABALIN
     Route: 065
  3. LYRICA [Suspect]
     Active Substance: PREGABALIN
     Route: 065
  4. LYRICA [Suspect]
     Active Substance: PREGABALIN
  5. METHADONE HYDROCHLORIDE [Suspect]
     Active Substance: METHADONE HYDROCHLORIDE
     Indication: Product used for unknown indication
     Dosage: 80 MG,BID (80MG METHADONE MORNING, EVENING, HALF INJECTED (OFTEN 120MG INSTEAD 80MG IN EVENING)
  6. METHADONE HYDROCHLORIDE [Suspect]
     Active Substance: METHADONE HYDROCHLORIDE
     Dosage: 80 MG,BID (80MG METHADONE MORNING, EVENING, HALF INJECTED (OFTEN 120MG INSTEAD 80MG IN EVENING)
     Route: 065
  7. METHADONE HYDROCHLORIDE [Suspect]
     Active Substance: METHADONE HYDROCHLORIDE
     Dosage: 80 MG,BID (80MG METHADONE MORNING, EVENING, HALF INJECTED (OFTEN 120MG INSTEAD 80MG IN EVENING)
     Route: 065
  8. METHADONE HYDROCHLORIDE [Suspect]
     Active Substance: METHADONE HYDROCHLORIDE
     Dosage: 80 MG,BID (80MG METHADONE MORNING, EVENING, HALF INJECTED (OFTEN 120MG INSTEAD 80MG IN EVENING)
  9. COCAINE [Suspect]
     Active Substance: COCAINE
     Indication: Product used for unknown indication
     Dosage: QD (0.5 TO 1G INJECTED/DAY)
  10. COCAINE [Suspect]
     Active Substance: COCAINE
     Dosage: QD (0.5 TO 1G INJECTED/DAY)
     Route: 065
  11. COCAINE [Suspect]
     Active Substance: COCAINE
     Dosage: QD (0.5 TO 1G INJECTED/DAY)
     Route: 065
  12. COCAINE [Suspect]
     Active Substance: COCAINE
     Dosage: QD (0.5 TO 1G INJECTED/DAY)
  13. CANNABIS SATIVA SUBSP. INDICA TOP [Suspect]
     Active Substance: CANNABIS SATIVA SUBSP. INDICA TOP
     Indication: Product used for unknown indication
  14. CANNABIS SATIVA SUBSP. INDICA TOP [Suspect]
     Active Substance: CANNABIS SATIVA SUBSP. INDICA TOP
     Route: 065
  15. CANNABIS SATIVA SUBSP. INDICA TOP [Suspect]
     Active Substance: CANNABIS SATIVA SUBSP. INDICA TOP
     Route: 065
  16. CANNABIS SATIVA SUBSP. INDICA TOP [Suspect]
     Active Substance: CANNABIS SATIVA SUBSP. INDICA TOP

REACTIONS (2)
  - Drug abuse [Recovering/Resolving]
  - Intentional product misuse [Recovering/Resolving]
